APPROVED DRUG PRODUCT: DILTIAZEM HYDROCHLORIDE
Active Ingredient: DILTIAZEM HYDROCHLORIDE
Strength: 180MG
Dosage Form/Route: TABLET, EXTENDED RELEASE;ORAL
Application: A216327 | Product #002 | TE Code: AB
Applicant: SCIEGEN PHARMACEUTICALS INC
Approved: Apr 6, 2023 | RLD: No | RS: No | Type: RX